FAERS Safety Report 7023276-3 (Version None)
Quarter: 2010Q3

REPORT INFORMATION
  Report Type: 
  Country: None (occurrence: None)
  Receive Date: 20100930
  Receipt Date: 20100914
  Transmission Date: 20110219
  Serious: Yes (Death, Other)
  Sender: FDA-Public Use
  Company Number: PHHY2010US46036

PATIENT
  Sex: Male

DRUGS (10)
  1. EXJADE [Suspect]
     Indication: MYELODYSPLASTIC SYNDROME
     Dosage: 1500 MG/ DAY
     Route: 048
     Dates: start: 20060905, end: 20070604
  2. DESFERAL [Concomitant]
     Dosage: UNK
     Route: 042
     Dates: start: 20070319
  3. LORAZEPAM [Concomitant]
     Dosage: 0.5 MG, UNK
     Route: 048
  4. COLACE [Concomitant]
     Dosage: 200 MG, UNK
     Route: 048
  5. LEVOXYL [Concomitant]
     Indication: HYPOTHYROIDISM
     Dosage: 0.175 MG, UNK
     Route: 048
  6. CALCITRIOL [Concomitant]
     Indication: HYPOCALCAEMIA
     Dosage: 0.5 MG, UNK
     Route: 048
  7. MAGNESIUM OXIDE [Concomitant]
     Dosage: 800 UNK, UNK
  8. CALTRATE [Concomitant]
     Dosage: 3600 UNK, UNK
  9. RED BLOOD CELLS [Concomitant]
     Dosage: 02 UNITS WEEKLY
  10. RED BLOOD CELLS [Concomitant]
     Dosage: 02 UNITS OF RBC WEEKLY

REACTIONS (19)
  - ACTIVITIES OF DAILY LIVING IMPAIRED [None]
  - ACUTE LEUKAEMIA [None]
  - ASTHENIA [None]
  - DECREASED APPETITE [None]
  - ECCHYMOSIS [None]
  - EXTRASYSTOLES [None]
  - FATIGUE [None]
  - GAIT DISTURBANCE [None]
  - HEART RATE INCREASED [None]
  - JOINT SWELLING [None]
  - LEUKOCYTOSIS [None]
  - MALAISE [None]
  - MALIGNANT NEOPLASM PROGRESSION [None]
  - MUSCLE ATROPHY [None]
  - MUSCULOSKELETAL PAIN [None]
  - OEDEMA [None]
  - PYREXIA [None]
  - TACHYCARDIA [None]
  - THROMBOCYTOPENIA [None]
